FAERS Safety Report 7523977-4 (Version None)
Quarter: 2011Q2

REPORT INFORMATION
  Report Type: 
  Country: None (occurrence: None)
  Receive Date: 20110603
  Receipt Date: 20110531
  Transmission Date: 20111010
  Serious: Yes (Death)
  Sender: FDA-Public Use
  Company Number: US-CELGENEUS-163-50794-11051668

PATIENT
  Sex: Male

DRUGS (4)
  1. NEXIUM [Concomitant]
     Dosage: 40 MILLIGRAM
     Route: 065
     Dates: start: 20110223, end: 20110317
  2. ALLOPURINOL [Concomitant]
     Indication: GOUT
     Dosage: 300 MILLIGRAM
     Route: 065
     Dates: end: 20110317
  3. VIDAZA [Suspect]
     Dosage: 122 MILLIGRAM
     Route: 065
     Dates: start: 20110124, end: 20110311
  4. HYDROXYUREA [Concomitant]
     Dosage: 500 MILLIGRAM
     Route: 065
     Dates: end: 20110317

REACTIONS (2)
  - CHRONIC MYELOID LEUKAEMIA [None]
  - ACUTE RESPIRATORY FAILURE [None]
